FAERS Safety Report 17883104 (Version 2)
Quarter: 2020Q2

REPORT INFORMATION
  Report Type: Report from Study
  Country: None (occurrence: CO)
  Receive Date: 20200611
  Receipt Date: 20200612
  Transmission Date: 20200714
  Serious: Yes (Other)
  Sender: FDA-Public Use
  Company Number: CO-ABBVIE-20K-036-3438604-00

PATIENT
  Sex: Male
  Weight: 105 kg

DRUGS (2)
  1. HUMIRA [Suspect]
     Active Substance: ADALIMUMAB
     Indication: ANKYLOSING SPONDYLITIS
     Route: 058
  2. HUMIRA [Suspect]
     Active Substance: ADALIMUMAB
     Indication: ANKYLOSING SPONDYLITIS
     Route: 058
     Dates: start: 20130225

REACTIONS (14)
  - Mental disorder [Not Recovered/Not Resolved]
  - Spondylitis [Not Recovered/Not Resolved]
  - Renal pain [Not Recovered/Not Resolved]
  - Insomnia [Not Recovered/Not Resolved]
  - Insomnia [Unknown]
  - Hypertension [Not Recovered/Not Resolved]
  - Posture abnormal [Not Recovered/Not Resolved]
  - Nephritis [Not Recovered/Not Resolved]
  - Back pain [Not Recovered/Not Resolved]
  - Musculoskeletal chest pain [Not Recovered/Not Resolved]
  - Suicidal ideation [Unknown]
  - Inflammation [Not Recovered/Not Resolved]
  - Headache [Not Recovered/Not Resolved]
  - Crying [Unknown]

NARRATIVE: CASE EVENT DATE: 2019
